FAERS Safety Report 13161181 (Version 1)
Quarter: 2017Q1

REPORT INFORMATION
  Report Type: Spontaneous
  Country: GB (occurrence: GB)
  Receive Date: 20170130
  Receipt Date: 20170130
  Transmission Date: 20170428
  Serious: Yes (Other)
  Sender: FDA-Public Use
  Company Number: GB-ACCORD-047642

PATIENT
  Age: 63 Year
  Sex: Female
  Weight: 42.18 kg

DRUGS (6)
  1. COLECALCIFEROL [Concomitant]
     Active Substance: CHOLECALCIFEROL
  2. ZAPAIN [Concomitant]
     Active Substance: ACETAMINOPHEN\CODEINE PHOSPHATE
  3. BETAHISTINE [Concomitant]
     Active Substance: BETAHISTINE
  4. RANELIC ACID [Concomitant]
     Active Substance: RANELIC ACID
  5. AMITRIPTYLINE [Suspect]
     Active Substance: AMITRIPTYLINE
     Indication: NEURALGIA
     Route: 048
     Dates: start: 20160913, end: 20170102
  6. GLICLAZIDE [Concomitant]
     Active Substance: GLICLAZIDE

REACTIONS (2)
  - Alopecia [Not Recovered/Not Resolved]
  - Wrist fracture [Recovering/Resolving]

NARRATIVE: CASE EVENT DATE: 201610
